FAERS Safety Report 5876990-7 (Version None)
Quarter: 2008Q3

REPORT INFORMATION
  Report Type: 
  Country: None (occurrence: None)
  Receive Date: 20080910
  Receipt Date: 20080901
  Transmission Date: 20090109
  Serious: Yes (Other)
  Sender: FDA-Public Use
  Company Number: PHHY2008DE17508

PATIENT
  Sex: Male
  Weight: 79 kg

DRUGS (4)
  1. RASILEZ [Suspect]
     Dosage: 300 MG PER DAY
     Dates: start: 20080215, end: 20080326
  2. RASILEZ [Suspect]
     Dosage: 150 MG PER DAY
     Dates: start: 20080327, end: 20080422
  3. VIANI [Concomitant]
  4. MOXONIDINE [Concomitant]
     Dosage: UNK
     Dates: start: 20080411

REACTIONS (22)
  - ASTIGMATISM [None]
  - BLOOD PRESSURE INCREASED [None]
  - BRONCHITIS [None]
  - CATARACT [None]
  - CHRONIC OBSTRUCTIVE PULMONARY DISEASE [None]
  - COUGH [None]
  - DERMATITIS [None]
  - DIARRHOEA [None]
  - DRUG INEFFECTIVE [None]
  - EMPHYSEMA [None]
  - HEART RATE INCREASED [None]
  - INCREASED UPPER AIRWAY SECRETION [None]
  - NASOPHARYNGITIS [None]
  - NEPHROLITHIASIS [None]
  - NERVOUSNESS [None]
  - PRODUCTIVE COUGH [None]
  - RALES [None]
  - SKIN DISORDER [None]
  - SURGERY [None]
  - THYROID HAEMORRHAGE [None]
  - TONSILLAR INFLAMMATION [None]
  - VARICOSE VEIN [None]
